FAERS Safety Report 19483613 (Version 2)
Quarter: 2021Q3

REPORT INFORMATION
  Report Type: Spontaneous
  Country: US (occurrence: US)
  Receive Date: 20210701
  Receipt Date: 20210812
  Transmission Date: 20211014
  Serious: Yes (Death, Other)
  Sender: FDA-Public Use
  Company Number: US-PFIZER INC-2021495824

PATIENT
  Age: 5 Decade

DRUGS (2)
  1. ATROPINE SULFATE. [Suspect]
     Active Substance: ATROPINE SULFATE
     Indication: ATRIOVENTRICULAR BLOCK
  2. ATROPINE SULFATE. [Suspect]
     Active Substance: ATROPINE SULFATE
     Indication: SINUS BRADYCARDIA
     Dosage: 0.5 MG
     Route: 042

REACTIONS (2)
  - Cardiac arrest [Fatal]
  - Drug ineffective [Fatal]
